FAERS Safety Report 11617317 (Version 2)
Quarter: 2015Q4

REPORT INFORMATION
  Report Type: Report from Study
  Country: US (occurrence: US)
  Receive Date: 20151009
  Receipt Date: 20151125
  Transmission Date: 20160304
  Serious: Yes (Other)
  Sender: FDA-Public Use
  Company Number: US-PURDUE-USA-2015-0126596

PATIENT
  Age: 40 Year
  Sex: Male

DRUGS (3)
  1. BTDS PATCH [Suspect]
     Active Substance: BUPRENORPHINE
     Indication: PAIN
     Dosage: 20 MG, WEEKLY
     Route: 062
     Dates: start: 201409
  2. TESTOSTERONE. [Interacting]
     Active Substance: TESTOSTERONE
     Indication: PRODUCT USED FOR UNKNOWN INDICATION
     Dosage: 1 ML, UNK
     Route: 065
  3. CABERGOLINE. [Interacting]
     Active Substance: CABERGOLINE
     Indication: PRODUCT USED FOR UNKNOWN INDICATION
     Route: 065

REACTIONS (5)
  - Application site burn [Unknown]
  - Application site vesicles [Unknown]
  - Application site exfoliation [Unknown]
  - Drug interaction [Unknown]
  - Unevaluable event [Unknown]

NARRATIVE: CASE EVENT DATE: 201409
